FAERS Safety Report 8006312-7 (Version None)
Quarter: 2011Q4

REPORT INFORMATION
  Report Type: 
  Country: None (occurrence: None)
  Receive Date: 20111226
  Receipt Date: 20111216
  Transmission Date: 20120403
  Serious: Yes (Hospitalization)
  Sender: FDA-Public Use
  Company Number: PHFR2011IE05005

PATIENT
  Sex: Female

DRUGS (8)
  1. ATENOLOL [Concomitant]
     Dosage: 50 MG/DAY
     Route: 048
  2. SENOKOT [Concomitant]
     Dosage: 5 ML/DAY
     Route: 048
  3. CLOZARIL [Suspect]
     Indication: SCHIZOPHRENIA, PARANOID TYPE
     Dosage: 150 MG/DAY
     Route: 048
     Dates: start: 20100429
  4. VALPROATE SODIUM [Concomitant]
     Dosage: 600 MG/DAY
     Route: 048
  5. CYCLIZINE [Concomitant]
     Dosage: 150 MG/DAY
     Route: 048
  6. FORTISIP [Concomitant]
     Dosage: 1 DF, TID
  7. LACTULOSE [Concomitant]
     Dosage: 20 ML/DAY
     Route: 048
  8. LETROZOLE [Concomitant]
     Dosage: 2.5 MG/DAY
     Route: 048

REACTIONS (2)
  - RESPIRATORY TRACT INFECTION [None]
  - GASTRIC INFECTION [None]
